FAERS Safety Report 23996471 (Version 1)
Quarter: 2024Q2

REPORT INFORMATION
  Report Type: Spontaneous
  Country: US (occurrence: None)
  Receive Date: 20240620
  Receipt Date: 20240620
  Transmission Date: 20240716
  Serious: Yes (Death, Hospitalization)
  Sender: FDA-Public Use
  Company Number: None

PATIENT
  Age: 71 Year
  Sex: Female

DRUGS (1)
  1. LENALIDOMIDE [Suspect]
     Active Substance: LENALIDOMIDE
     Indication: Plasma cell myeloma
     Dosage: FREQUENCY : DAILY;?
     Route: 048
     Dates: start: 20231024, end: 20240423

REACTIONS (12)
  - Hypophagia [None]
  - Hypotension [None]
  - Multiple organ dysfunction syndrome [None]
  - Septic shock [None]
  - Lactic acidosis [None]
  - Acute kidney injury [None]
  - Hyperkalaemia [None]
  - Coagulopathy [None]
  - Myocardial ischaemia [None]
  - Acute respiratory failure [None]
  - Encephalopathy [None]
  - Mental status changes [None]

NARRATIVE: CASE EVENT DATE: 20240429
